FAERS Safety Report 8946019 (Version 2)
Quarter: 2013Q1

REPORT INFORMATION
  Report Type: Spontaneous
  Country: CN (occurrence: CN)
  Receive Date: 20121205
  Receipt Date: 20130131
  Transmission Date: 20140127
  Serious: Yes (Other)
  Sender: FDA-Public Use
  Company Number: CN-ABBOTT-12P-035-1014823-00

PATIENT
  Age: 36 Year
  Sex: Male

DRUGS (4)
  1. DEPAKINE CHRONO [Suspect]
     Indication: EPILEPSY
     Dosage: 1 DOSAGE FORM; TWICE A DAY
     Route: 048
     Dates: start: 201211
  2. DEPAKINE CHRONO [Suspect]
     Route: 048
     Dates: start: 2006, end: 201211
  3. ZHENG JU PIAN [Concomitant]
     Indication: EPILEPSY
     Dates: start: 201203
  4. PHENOBARBITAL SODIUM [Concomitant]
     Indication: EPILEPSY
     Dates: start: 201203

REACTIONS (5)
  - Fall [Recovered/Resolved]
  - Epilepsy [Recovered/Resolved]
  - Confusional state [Recovered/Resolved]
  - Vomiting [Recovered/Resolved]
  - Somnambulism [Recovered/Resolved]
